FAERS Safety Report 5381065-X (Version None)
Quarter: 2007Q3

REPORT INFORMATION
  Report Type: 
  Country: None (occurrence: None)
  Receive Date: 20070706
  Receipt Date: 20070627
  Transmission Date: 20080115
  Serious: Yes (Other)
  Sender: FDA-Public Use
  Company Number: GB-PFIZER INC-2004007070

PATIENT
  Age: 12 Year
  Sex: Male

DRUGS (2)
  1. ZOLOFT [Suspect]
     Indication: ILL-DEFINED DISORDER
     Dosage: DAILY DOSE:200MG
     Route: 065
  2. PAXIL [Concomitant]
     Route: 065

REACTIONS (5)
  - HALLUCINATION, AUDITORY [None]
  - HOMICIDE [None]
  - MANIA [None]
  - PSYCHOTIC DISORDER [None]
  - PYROMANIA [None]
